FAERS Safety Report 6571055-3 (Version None)
Quarter: 2010Q1

REPORT INFORMATION
  Report Type: 
  Country: None (occurrence: None)
  Receive Date: 20100202
  Receipt Date: 20100202
  Transmission Date: 20100710
  Serious: Yes (Hospitalization)
  Sender: FDA-Public Use
  Company Number: None

PATIENT
  Age: 83 Year
  Sex: Male
  Weight: 73 kg

DRUGS (1)
  1. GEMCITABINE [Suspect]
     Indication: BLADDER CANCER
     Dosage: 1568-1600 MG QWEEK IV
     Route: 042
     Dates: start: 20090128, end: 20090617

REACTIONS (7)
  - CARDIOMEGALY [None]
  - CEREBRAL INFARCTION [None]
  - CULTURE URINE POSITIVE [None]
  - INFARCTION [None]
  - PANCYTOPENIA [None]
  - SEPSIS [None]
  - URINARY TRACT INFECTION [None]
